FAERS Safety Report 19304405 (Version 4)
Quarter: 2022Q2

REPORT INFORMATION
  Report Type: Spontaneous
  Country: US (occurrence: US)
  Receive Date: 20210525
  Receipt Date: 20220504
  Transmission Date: 20220721
  Serious: No
  Sender: FDA-Public Use
  Company Number: US-PFIZER INC-2021106678

PATIENT
  Age: 90 Year
  Sex: Female
  Weight: 57.47 kg

DRUGS (2)
  1. XELJANZ XR [Suspect]
     Active Substance: TOFACITINIB CITRATE
     Indication: Arthritis
     Dosage: 11 MG, 1X/DAY(1 LITTLE PINK TABLET BY MOUTH ONCE DAILY)
     Route: 048
     Dates: start: 2021
  2. XELJANZ XR [Suspect]
     Active Substance: TOFACITINIB CITRATE
     Dosage: 11 MG
     Route: 048
     Dates: start: 20210602

REACTIONS (4)
  - Panic reaction [Unknown]
  - Body height decreased [Unknown]
  - Insomnia [Unknown]
  - Product dispensing issue [Unknown]

NARRATIVE: CASE EVENT DATE: 20210601
